FAERS Safety Report 9413650 (Version 1)
Quarter: 2013Q3

REPORT INFORMATION
  Report Type: Not Available
  Country: FR (occurrence: FR)
  Receive Date: 20130722
  Receipt Date: 20130722
  Transmission Date: 20140515
  Serious: Yes (Other)
  Sender: FDA-Public Use
  Company Number: FR-RB-056196-13

PATIENT
  Age: 0 Day
  Sex: Male

DRUGS (4)
  1. SUBUTEX [Suspect]
     Indication: DRUG DEPENDENCE
     Route: 064
     Dates: end: 20040523
  2. SUSTIVA [Suspect]
     Indication: HIV INFECTION
     Dosage: 1 TABLET DAILY
     Route: 064
     Dates: start: 20031011, end: 20040102
  3. COMBIVIR [Suspect]
     Indication: HIV INFECTION
     Dosage: 2 TABLETS DAILY
     Route: 064
     Dates: start: 20031011, end: 20040102
  4. KALETRA [Suspect]
     Indication: HIV INFECTION
     Dosage: 6 TABLETS DAILY
     Route: 064
     Dates: start: 20040129, end: 20040523

REACTIONS (2)
  - Foetal exposure during pregnancy [Recovered/Resolved]
  - Premature baby [Recovered/Resolved]
